FAERS Safety Report 8343807-0 (Version None)
Quarter: 2012Q2

REPORT INFORMATION
  Report Type: 
  Country: None (occurrence: None)
  Receive Date: 20120503
  Receipt Date: 20120425
  Transmission Date: 20120825
  Serious: Yes (Death)
  Sender: FDA-Public Use
  Company Number: 2012SP022251

PATIENT
  Age: 59 Year
  Sex: Female
  Weight: 61 kg

DRUGS (5)
  1. ALDACTONE [Concomitant]
  2. VICTRELIS [Suspect]
     Indication: HEPATITIS C
     Dosage: 200 MG;QID
     Dates: start: 20110517, end: 20120115
  3. PEGINTERFERON ALFA-2B [Suspect]
     Indication: HEPATITIS C
     Dosage: 120 MCG;QW
     Dates: start: 20110415, end: 20120115
  4. REBETOL [Suspect]
     Indication: HEPATITIS C
     Dosage: 200 MG;QID
     Dates: start: 20110415, end: 20120115
  5. NEORECORMON [Concomitant]

REACTIONS (2)
  - MULTI-ORGAN FAILURE [None]
  - SEPSIS [None]
